FAERS Safety Report 10288314 (Version 1)
Quarter: 2014Q3

REPORT INFORMATION
  Report Type: Spontaneous
  Country: US (occurrence: US)
  Receive Date: 20140709
  Receipt Date: 20140709
  Transmission Date: 20150326
  Serious: Yes (Other)
  Sender: FDA-Public Use
  Company Number: US-PFIZER INC-2014185290

PATIENT
  Age: 69 Year
  Sex: Male

DRUGS (7)
  1. ASPIRIN. [Concomitant]
     Active Substance: ASPIRIN
     Dosage: 81 MG, 1X/DAY (IN TH EVENING AFTER MEALS)
     Route: 048
  2. LIPITOR [Suspect]
     Active Substance: ATORVASTATIN CALCIUM
     Indication: HYPERLIPIDAEMIA
     Dosage: 40 MG, 1X/DAY
     Route: 048
  3. VITAMIN D3 [Concomitant]
     Active Substance: CHOLECALCIFEROL
     Dosage: 5000 UNITS (1 TAB), 1X/DAY
     Route: 048
  4. AXIRON [Concomitant]
     Active Substance: TESTOSTERONE
     Dosage: 3 ACTUATIONS PER DAY (90 MG) TOPICAL TO THE AXILLA
     Route: 061
  5. TRIAMCINOLONE [Concomitant]
     Active Substance: TRIAMCINOLONE
     Indication: RASH
     Dosage: 1 DF, 2X/DAY PRN
  6. CIALIS [Concomitant]
     Active Substance: TADALAFIL
     Dosage: 5 MG 1X/DAY
     Route: 048
  7. RHINOCORT AQUA [Concomitant]
     Active Substance: BUDESONIDE
     Dosage: 32 MCG (1 SPRAY EACH NARES), 1X/DAY
     Route: 045

REACTIONS (3)
  - Interstitial lung disease [Recovered/Resolved]
  - Alveolitis allergic [Unknown]
  - Drug hypersensitivity [Unknown]

NARRATIVE: CASE EVENT DATE: 2013
